FAERS Safety Report 5046212-8 (Version None)
Quarter: 2006Q2

REPORT INFORMATION
  Report Type: 
  Country: None (occurrence: None)
  Receive Date: 20060629
  Receipt Date: 20060616
  Transmission Date: 20061013
  Serious: Yes (Hospitalization)
  Sender: FDA-Public Use
  Company Number: 2006BI008730

PATIENT
  Age: 50 Year
  Sex: Female
  Weight: 53.978 kg

DRUGS (4)
  1. AVONEX [Suspect]
     Indication: MULTIPLE SCLEROSIS
     Dosage: IM
     Route: 030
     Dates: start: 20050101
  2. ZYPREXA [Concomitant]
  3. LOVENOX [Concomitant]
  4. STOOL SOFTENER [Concomitant]

REACTIONS (9)
  - DEPRESSION [None]
  - DYSPHAGIA [None]
  - ERYTHEMA [None]
  - FAECAL INCONTINENCE [None]
  - MEMORY IMPAIRMENT [None]
  - MUSCLE SPASMS [None]
  - MUSCULOSKELETAL STIFFNESS [None]
  - PNEUMONIA [None]
  - URINARY INCONTINENCE [None]
